FAERS Safety Report 6524682-3 (Version None)
Quarter: 2009Q4

REPORT INFORMATION
  Report Type: 
  Country: None (occurrence: None)
  Receive Date: 20091222
  Receipt Date: 20091210
  Transmission Date: 20100525
  Serious: Yes (Other)
  Sender: FDA-Public Use
  Company Number: 2009PV000081

PATIENT
  Age: 68 Year
  Sex: Male

DRUGS (4)
  1. DEPOCYT [Suspect]
     Indication: CHRONIC LYMPHOCYTIC LEUKAEMIA
     Dosage: 50 MG, 6-7 X, INTH
     Route: 037
     Dates: end: 20091110
  2. RITUXIMAB (RITUXIMAB) [Suspect]
     Indication: METASTASES TO MENINGES
     Dosage: 5X
     Dates: start: 20091110, end: 20091113
  3. CYCLOPHOSPHAMIDE [Suspect]
     Indication: CHRONIC LYMPHOCYTIC LEUKAEMIA
     Dosage: 5X
     Dates: start: 20091110, end: 20091113
  4. FLUDARABINE PHOSPHATE [Suspect]
     Indication: METASTASES TO MENINGES
     Dosage: 5X
     Dates: end: 20091113

REACTIONS (2)
  - CAUDA EQUINA SYNDROME [None]
  - NEUROTOXICITY [None]
